FAERS Safety Report 7877115-9 (Version None)
Quarter: 2011Q4

REPORT INFORMATION
  Report Type: 
  Country: None (occurrence: None)
  Receive Date: 20111031
  Receipt Date: 20111018
  Transmission Date: 20120403
  Serious: Yes (Other)
  Sender: FDA-Public Use
  Company Number: CA-MYLANLABS-2011S1022033

PATIENT
  Age: 62 Year
  Sex: Male

DRUGS (1)
  1. TAMSULOSIN HCL [Suspect]
     Route: 065

REACTIONS (2)
  - ANGLE CLOSURE GLAUCOMA [None]
  - FLOPPY IRIS SYNDROME [None]
